FAERS Safety Report 12657031 (Version 1)
Quarter: 2016Q3

REPORT INFORMATION
  Report Type: Spontaneous
  Country: JP (occurrence: JP)
  Receive Date: 20160816
  Receipt Date: 20160816
  Transmission Date: 20161109
  Serious: Yes (Hospitalization)
  Sender: FDA-Public Use
  Company Number: JP-GILEAD-2016-0224433

PATIENT
  Age: 50 Year
  Sex: Male

DRUGS (4)
  1. SOVALDI [Suspect]
     Active Substance: SOFOSBUVIR
     Indication: CHRONIC HEPATITIS C
     Dosage: 400 MG, UNK
     Route: 048
     Dates: start: 201605, end: 2016
  2. SOVALDI [Suspect]
     Active Substance: SOFOSBUVIR
     Dosage: 400 UNK, UNK
     Route: 048
     Dates: start: 20160719
  3. REBETOL [Concomitant]
     Active Substance: RIBAVIRIN
     Dosage: UNK
     Dates: start: 20160719
  4. REBETOL [Concomitant]
     Active Substance: RIBAVIRIN
     Indication: CHRONIC HEPATITIS C
     Dosage: UNK
     Dates: start: 201605, end: 2016

REACTIONS (2)
  - Psychiatric symptom [Unknown]
  - Drug dose omission [Unknown]
